FAERS Safety Report 8929998 (Version 1)
Quarter: 2012Q4

REPORT INFORMATION
  Report Type: 
  Country: US (occurrence: US)
  Receive Date: 20121128
  Receipt Date: 20121128
  Transmission Date: 20130627
  Serious: Yes (Death)
  Sender: FDA-Public Use
  Company Number: PHHY2012US107828

PATIENT
  Age: 41 Year
  Sex: Female

DRUGS (4)
  1. OXYCODONE HYDROCHLORIDE [Suspect]
  2. DIAZEPAM [Suspect]
  3. OXYMORPHONE [Suspect]
  4. NORDIAZEPAM [Suspect]

REACTIONS (1)
  - Toxicity to various agents [Fatal]
